FAERS Safety Report 19516792 (Version 1)
Quarter: 2021Q3

REPORT INFORMATION
  Report Type: Spontaneous
  Country: US (occurrence: US)
  Receive Date: 20210711
  Receipt Date: 20210711
  Transmission Date: 20211014
  Serious: No
  Sender: FDA-Public Use
  Company Number: US-ELI_LILLY_AND_COMPANY-US202107004208

PATIENT
  Age: 53 Year
  Sex: Female

DRUGS (3)
  1. FLONASE [Concomitant]
     Active Substance: FLUTICASONE PROPIONATE
     Indication: PRODUCT USED FOR UNKNOWN INDICATION
     Dosage: 3 MG, UNKNOWN
     Route: 065
  2. BAQSIMI [Suspect]
     Active Substance: GLUCAGON
     Indication: PRODUCT USED FOR UNKNOWN INDICATION
     Dosage: 3 MG, UNKNOWN
     Route: 045
  3. BAQSIMI [Suspect]
     Active Substance: GLUCAGON
     Dosage: 3 MG, UNKNOWN
     Route: 045

REACTIONS (3)
  - Eye pain [Recovered/Resolved]
  - Headache [Recovered/Resolved]
  - Rhinalgia [Recovered/Resolved]

NARRATIVE: CASE EVENT DATE: 20210626
